FAERS Safety Report 23292596 (Version 4)
Quarter: 2024Q4

REPORT INFORMATION
  Report Type: Spontaneous
  Country: US (occurrence: US)
  Receive Date: 20231213
  Receipt Date: 20241022
  Transmission Date: 20250114
  Serious: No
  Sender: SANOFI AVENTIS
  Company Number: US-SA-SAC20231207000257

PATIENT
  Age: 37 Year
  Sex: Female
  Weight: 58.1 kg

DRUGS (5)
  1. DUPIXENT [Suspect]
     Active Substance: DUPILUMAB
     Indication: Dermatitis atopic
     Dosage: 600 MG, 1X
     Route: 058
     Dates: start: 20231122, end: 20231122
  2. DUPIXENT [Suspect]
     Active Substance: DUPILUMAB
     Dosage: 300 MG, QOW
     Route: 058
     Dates: start: 2023
  3. DUPIXENT [Suspect]
     Active Substance: DUPILUMAB
     Indication: Dermatitis atopic
     Dosage: UNK
  4. CLOMID [Concomitant]
     Active Substance: CLOMIPHENE CITRATE
  5. PEPCID [Concomitant]
     Active Substance: FAMOTIDINE

REACTIONS (6)
  - Pain of skin [Unknown]
  - Skin burning sensation [Unknown]
  - Illness [Unknown]
  - Injection site pain [Unknown]
  - Injection site rash [Unknown]
  - Drug ineffective [Unknown]

NARRATIVE: CASE EVENT DATE: 20231122
